FAERS Safety Report 13015234 (Version 2)
Quarter: 2016Q4

REPORT INFORMATION
  Report Type: Spontaneous
  Country: IT (occurrence: IT)
  Receive Date: 20161211
  Receipt Date: 20161228
  Transmission Date: 20170207
  Serious: Yes (Other)
  Sender: FDA-Public Use
  Company Number: IT-TEVA-717132ACC

PATIENT
  Age: 70 Year
  Sex: Male

DRUGS (2)
  1. AMOXICILLIN TRIHYDRATE [Suspect]
     Active Substance: AMOXICILLIN
     Indication: ANAPHYLACTIC REACTION
     Route: 042
  2. AMOXICILLIN TRIHYDRATE [Suspect]
     Active Substance: AMOXICILLIN
     Dosage: 500 MILLIGRAM DAILY;
     Route: 065

REACTIONS (2)
  - Kounis syndrome [Unknown]
  - Anaphylactic reaction [Unknown]
